FAERS Safety Report 6588496-0 (Version None)
Quarter: 2010Q1

REPORT INFORMATION
  Report Type: 
  Country: None (occurrence: None)
  Receive Date: 20100218
  Receipt Date: 20091111
  Transmission Date: 20100710
  Serious: No
  Sender: FDA-Public Use
  Company Number: US-ALLERGAN-0915626US

PATIENT
  Sex: Female

DRUGS (6)
  1. BOTOX COSMETIC [Suspect]
     Indication: SKIN WRINKLING
     Dosage: 36 UNITS, SINGLE
     Route: 030
     Dates: start: 20091007, end: 20091007
  2. EVOLENCE [Concomitant]
  3. JUVEDERM ULTRA PLUS [Concomitant]
  4. HORMONE [Concomitant]
     Indication: SUPPLEMENTATION THERAPY
  5. CALCIUM [Concomitant]
  6. VITAMINS [Concomitant]

REACTIONS (1)
  - SWELLING FACE [None]
